FAERS Safety Report 7914820-X (Version None)
Quarter: 2011Q4

REPORT INFORMATION
  Report Type: 
  Country: None (occurrence: None)
  Receive Date: 20111115
  Receipt Date: 20111107
  Transmission Date: 20120403
  Serious: Yes (Other)
  Sender: FDA-Public Use
  Company Number: US-US-EMD SERONO, INC.-7094482

PATIENT
  Sex: Female
  Weight: 91 kg

DRUGS (4)
  1. REBIF [Suspect]
     Indication: MULTIPLE SCLEROSIS
     Route: 058
     Dates: start: 20110627, end: 20111007
  2. GABAPENTIN [Suspect]
     Indication: NEURALGIA
     Dates: end: 20111001
  3. AMANTADINE HCL [Concomitant]
  4. ZANAFLEX [Concomitant]
     Indication: MUSCLE SPASTICITY

REACTIONS (5)
  - VENTRICULAR EXTRASYSTOLES [None]
  - HYPERHIDROSIS [None]
  - CHEST PAIN [None]
  - VOMITING [None]
  - URINARY TRACT INFECTION [None]
